FAERS Safety Report 26210584 (Version 1)
Quarter: 2025Q4

REPORT INFORMATION
  Report Type: Spontaneous
  Country: US (occurrence: US)
  Receive Date: 20251230
  Receipt Date: 20251230
  Transmission Date: 20260119
  Serious: Yes (Death, Other)
  Sender: AMGEN
  Company Number: US-AMGEN-USASP2025255818

PATIENT

DRUGS (1)
  1. BLINATUMOMAB [Suspect]
     Active Substance: BLINATUMOMAB
     Indication: Haematological malignancy
     Dosage: UNK
     Route: 065

REACTIONS (8)
  - Hypotension [Fatal]
  - Cytokine release syndrome [Fatal]
  - Haematological malignancy [Fatal]
  - Cytopenia [Fatal]
  - Pneumocystis jirovecii pneumonia [Fatal]
  - Encephalopathy [Fatal]
  - Cranial nerve paralysis [Fatal]
  - Fungal sepsis [Fatal]
